FAERS Safety Report 13680731 (Version 1)
Quarter: 2017Q2

REPORT INFORMATION
  Report Type: Spontaneous
  Country: PL (occurrence: PL)
  Receive Date: 20170623
  Receipt Date: 20170623
  Transmission Date: 20170830
  Serious: Yes (Other)
  Sender: FDA-Public Use
  Company Number: PL-APOTEX-2017AP013278

PATIENT
  Age: 46 Year
  Sex: Female

DRUGS (7)
  1. CLOZAPINE. [Suspect]
     Active Substance: CLOZAPINE
     Indication: TARDIVE DYSKINESIA
     Route: 065
  2. CLOZAPINE. [Suspect]
     Active Substance: CLOZAPINE
     Dosage: 25 MG, PER DAY
     Route: 065
  3. ARIPIPRAZOLE. [Suspect]
     Active Substance: ARIPIPRAZOLE
     Indication: MANIA
     Route: 065
  4. PERPHENAZINE. [Suspect]
     Active Substance: PERPHENAZINE
     Indication: MANIA
     Route: 065
  5. LAMOTRIGINE. [Suspect]
     Active Substance: LAMOTRIGINE
     Dosage: 200 MG, PER DAY
     Route: 065
  6. APOTIAPINA [Suspect]
     Active Substance: QUETIAPINE
     Indication: MANIA
     Route: 065
  7. TETRABENAZINE. [Suspect]
     Active Substance: TETRABENAZINE
     Indication: TARDIVE DYSKINESIA
     Route: 065

REACTIONS (3)
  - Deformity [Unknown]
  - Facial asymmetry [Unknown]
  - Tardive dyskinesia [Recovering/Resolving]
